FAERS Safety Report 6497572-2 (Version None)
Quarter: 2009Q4

REPORT INFORMATION
  Report Type: 
  Country: None (occurrence: None)
  Receive Date: 20091215
  Receipt Date: 20091124
  Transmission Date: 20100525
  Serious: Yes (Other)
  Sender: FDA-Public Use
  Company Number: ES-SANOFI-AVENTIS-2009SA004312

PATIENT
  Age: 53 Year
  Sex: Female

DRUGS (1)
  1. ISONIAZID/PYRAZINAMIDE/RIFAMPICIN [Suspect]
     Indication: PULMONARY TUBERCULOSIS
     Route: 048
     Dates: start: 20091026, end: 20091109

REACTIONS (1)
  - SINUS TACHYCARDIA [None]
